FAERS Safety Report 9365167 (Version 1)
Quarter: 2013Q2

REPORT INFORMATION
  Report Type: Spontaneous
  Country: GB (occurrence: GB)
  Receive Date: 20130624
  Receipt Date: 20130624
  Transmission Date: 20140414
  Serious: Yes (Other)
  Sender: FDA-Public Use
  Company Number: PHHY2013GB062212

PATIENT
  Age: 69 Year
  Sex: Female
  Weight: 70 kg

DRUGS (7)
  1. METHOTREXATE [Suspect]
     Indication: RHEUMATOID ARTHRITIS
     Dosage: 7.7 MG, QW
     Route: 048
     Dates: end: 20130510
  2. ROACTEMRA [Interacting]
     Indication: RHEUMATOID ARTHRITIS
     Dosage: 580 DF, UNK
     Route: 042
     Dates: start: 20130423, end: 20130521
  3. FOLIC ACID [Concomitant]
     Indication: RHEUMATOID ARTHRITIS
     Dosage: 5 MG, QD
     Route: 048
  4. BENDROFLUMETHIAZIDE [Concomitant]
     Indication: HYPERTENSION
     Dosage: 2.5 MG, QD
     Route: 048
  5. ALENDRONIC ACID [Concomitant]
     Indication: OSTEOPOROSIS
     Dosage: 70 MG, UNK
     Route: 048
  6. CALCIUM + VITAMIN D [Concomitant]
     Indication: OSTEOPOROSIS
     Dosage: 2 DF, UNK
     Route: 048
  7. TERAZOSIN [Concomitant]
     Dosage: 2 MG, UNK
     Route: 048

REACTIONS (2)
  - Neutropenia [Recovering/Resolving]
  - Drug interaction [Unknown]
